FAERS Safety Report 6947323-X (Version None)
Quarter: 2010Q3

REPORT INFORMATION
  Report Type: 
  Country: None (occurrence: None)
  Receive Date: 20100825
  Receipt Date: 20100809
  Transmission Date: 20110219
  Serious: Yes (Disabling, Other)
  Sender: FDA-Public Use
  Company Number: ACO_01750_2010

PATIENT
  Sex: Female
  Weight: 72.5755 kg

DRUGS (4)
  1. AMPYRA [Suspect]
     Indication: MULTIPLE SCLEROSIS
     Dosage: (10 MG BID ORAL)
     Dates: start: 20100806, end: 20100807
  2. ASPIRIN [Concomitant]
  3. CALTRATE [Concomitant]
  4. FISH OIL [Concomitant]

REACTIONS (3)
  - CONDITION AGGRAVATED [None]
  - GAIT DISTURBANCE [None]
  - TREMOR [None]
